FAERS Safety Report 23375435 (Version 1)
Quarter: 2024Q1

REPORT INFORMATION
  Report Type: Spontaneous
  Country: GB (occurrence: GB)
  Receive Date: 20240107
  Receipt Date: 20240107
  Transmission Date: 20240410
  Serious: Yes (Life-Threatening, Hospitalization, Other)
  Sender: FDA-Public Use
  Company Number: GB-TORRENT-00025280

PATIENT
  Age: 76 Year
  Sex: Female

DRUGS (4)
  1. QUETIAPINE [Suspect]
     Active Substance: QUETIAPINE
     Indication: Parkinson^s disease
     Dosage: OD (IN THE RIGHT EYE)
     Route: 065
  2. RIVASTIGMINE [Suspect]
     Active Substance: RIVASTIGMINE
     Indication: Parkinson^s disease
     Dosage: BD (TWICE DAILY)
     Route: 065
  3. CARBIDOPA\LEVODOPA [Suspect]
     Active Substance: CARBIDOPA\LEVODOPA
     Indication: Dementia
     Route: 065
  4. rotigotine patch [Concomitant]
     Indication: Product used for unknown indication
     Dosage: 8 MG/24 H

REACTIONS (4)
  - Neuroleptic malignant syndrome [Unknown]
  - Withdrawal syndrome [Unknown]
  - Acute kidney injury [Unknown]
  - Unresponsive to stimuli [Unknown]
